FAERS Safety Report 15854882 (Version 2)
Quarter: 2019Q1

REPORT INFORMATION
  Report Type: Spontaneous
  Country: SE (occurrence: SE)
  Receive Date: 20190122
  Receipt Date: 20190204
  Transmission Date: 20190417
  Serious: Yes (Other)
  Sender: FDA-Public Use
  Company Number: SE-BAYER-2019-014060

PATIENT
  Age: 26 Year
  Sex: Female

DRUGS (1)
  1. KYLEENA [Suspect]
     Active Substance: LEVONORGESTREL
     Dosage: 17.5 MG/24HR
     Route: 015
     Dates: start: 20181220, end: 20190110

REACTIONS (10)
  - Pelvic fluid collection [Recovered/Resolved]
  - Cyst [Recovering/Resolving]
  - Pain [Recovering/Resolving]
  - Muscle spasms [Recovering/Resolving]
  - Cyst rupture [Recovering/Resolving]
  - Device expulsion [Recovered/Resolved]
  - Pyrexia [Recovering/Resolving]
  - Device difficult to use [None]
  - Chills [Recovering/Resolving]
  - Syncope [Recovered/Resolved]

NARRATIVE: CASE EVENT DATE: 201901
